FAERS Safety Report 23627638 (Version 1)
Quarter: 2024Q1

REPORT INFORMATION
  Report Type: Spontaneous
  Country: US (occurrence: None)
  Receive Date: 20240313
  Receipt Date: 20240313
  Transmission Date: 20240409
  Serious: Yes (Death, Hospitalization)
  Sender: FDA-Public Use
  Company Number: None

PATIENT
  Age: 11 Year
  Sex: Male
  Weight: 31.5 kg

DRUGS (3)
  1. MERCAPTOPURINE [Suspect]
     Active Substance: MERCAPTOPURINE
     Dates: end: 20240228
  2. METHOTREXATE [Suspect]
     Active Substance: METHOTREXATE
     Dates: end: 20240228
  3. GLEEVEC [Suspect]
     Active Substance: IMATINIB MESYLATE
     Dates: end: 20240228

REACTIONS (16)
  - Mental status changes [None]
  - Haemoglobin decreased [None]
  - Tachycardia [None]
  - Septic shock [None]
  - COVID-19 [None]
  - Acute kidney injury [None]
  - Acute respiratory distress syndrome [None]
  - Multiple organ dysfunction syndrome [None]
  - Blood pressure decreased [None]
  - Pulse absent [None]
  - Lactic acidosis [None]
  - Pneumonia streptococcal [None]
  - Klebsiella bacteraemia [None]
  - Respiratory failure [None]
  - Abdominal compartment syndrome [None]
  - Hepatic function abnormal [None]

NARRATIVE: CASE EVENT DATE: 20240311
